FAERS Safety Report 7916994-3 (Version None)
Quarter: 2011Q4

REPORT INFORMATION
  Report Type: 
  Country: None (occurrence: None)
  Receive Date: 20111116
  Receipt Date: 20111116
  Transmission Date: 20120403
  Serious: Yes (Other)
  Sender: FDA-Public Use
  Company Number: None

PATIENT
  Sex: Female
  Weight: 70.306 kg

DRUGS (1)
  1. NEULASTA [Suspect]
     Indication: WHITE BLOOD CELL COUNT
     Dosage: 6%
     Route: 058
     Dates: start: 20111103, end: 20111103

REACTIONS (6)
  - NO THERAPEUTIC RESPONSE [None]
  - DIARRHOEA [None]
  - PAIN [None]
  - WHITE BLOOD CELL COUNT INCREASED [None]
  - MUSCULOSKELETAL PAIN [None]
  - INSOMNIA [None]
